FAERS Safety Report 9587499 (Version 1)
Quarter: 2013Q4

REPORT INFORMATION
  Report Type: Spontaneous
  Country: US (occurrence: US)
  Receive Date: 20131003
  Receipt Date: 20131003
  Transmission Date: 20140711
  Serious: Yes (Other)
  Sender: FDA-Public Use
  Company Number: US-TEVA-435706USA

PATIENT
  Age: 79 Year
  Sex: Female

DRUGS (17)
  1. ENALAPRIL [Suspect]
  2. FUROSEMIDE [Suspect]
  3. PANTOPRAZOLE [Suspect]
  4. LYRICA [Suspect]
     Dosage: ONE Q AM; 2 Q PM
     Route: 048
  5. PROTONIX [Suspect]
     Dosage: 40 MILLIGRAM DAILY;
     Route: 048
  6. PRADAXA [Concomitant]
  7. METOPROLOL SUCCINATE [Concomitant]
  8. POTASSIUM CHLORIDE [Concomitant]
     Dosage: ER MEQ
  9. SULFAZINE [Concomitant]
  10. DIOXIN [Concomitant]
  11. ATORVASTATIN [Concomitant]
  12. PREDNISONE [Concomitant]
  13. ALLOPURINOL [Concomitant]
  14. ADVAIR [Concomitant]
     Dosage: 100/50
  15. SPIRIVA [Concomitant]
  16. LEVAMIR [Concomitant]
  17. NOVALOG [Concomitant]

REACTIONS (1)
  - Lung neoplasm malignant [Unknown]
